FAERS Safety Report 9069885 (Version 1)
Quarter: 2013Q1

REPORT INFORMATION
  Report Type: Report from Study
  Country: US (occurrence: US)
  Receive Date: 20130129
  Receipt Date: 20130129
  Transmission Date: 20140127
  Serious: No
  Sender: FDA-Public Use
  Company Number: US-ABBOTT-12P-163-0944037-00

PATIENT
  Age: 57 Year
  Sex: Female

DRUGS (1)
  1. HUMIRA 40 MG/0.8 ML PEN [Suspect]
     Indication: RHEUMATOID ARTHRITIS
     Route: 058
     Dates: start: 20120603

REACTIONS (7)
  - Mobility decreased [Unknown]
  - Hypoaesthesia [Unknown]
  - Musculoskeletal stiffness [Unknown]
  - Joint stiffness [Unknown]
  - Joint stiffness [Unknown]
  - Joint stiffness [Unknown]
  - Hypoaesthesia [Unknown]
